FAERS Safety Report 26199097 (Version 1)
Quarter: 2025Q4

REPORT INFORMATION
  Report Type: Report from Study
  Country: KR (occurrence: None)
  Receive Date: 20251225
  Receipt Date: 20251225
  Transmission Date: 20260118
  Serious: Yes (Congenital Anomaly, Other)
  Sender: UCB
  Company Number: KR-UCBSA-2025080874

PATIENT

DRUGS (1)
  1. LEVETIRACETAM [Suspect]
     Active Substance: LEVETIRACETAM
     Indication: Epilepsy
     Dosage: UNK

REACTIONS (10)
  - Hypospadias [Unknown]
  - Microcephaly [Unknown]
  - Congenital hydrocephalus [Unknown]
  - Talipes [Unknown]
  - Ventricular septal defect [Unknown]
  - Cleft palate [Unknown]
  - Cleft lip [Unknown]
  - Atrial septal defect [Unknown]
  - Diaphragmatic hernia [Unknown]
  - Maternal exposure during pregnancy [Unknown]
